FAERS Safety Report 5699923-5 (Version None)
Quarter: 2008Q2

REPORT INFORMATION
  Report Type: 
  Country: None (occurrence: None)
  Receive Date: 20080410
  Receipt Date: 20080331
  Transmission Date: 20081010
  Serious: Yes (Other)
  Sender: FDA-Public Use
  Company Number: ES-MERCK-0804USA01154

PATIENT
  Age: 49 Year
  Sex: Female

DRUGS (2)
  1. MODURETIC 5-50 [Suspect]
     Indication: HYPERCALCIURIA
     Route: 048
     Dates: start: 20080211, end: 20080214
  2. SOY ISOFLAVONES [Concomitant]
     Indication: MENOPAUSE
     Route: 065
     Dates: start: 20080201, end: 20080214

REACTIONS (3)
  - MUSCULAR WEAKNESS [None]
  - MYALGIA [None]
  - WEIGHT DECREASED [None]
